FAERS Safety Report 4470017-X (Version None)
Quarter: 2004Q3

REPORT INFORMATION
  Report Type: 
  Country: None (occurrence: None)
  Receive Date: 20040920
  Receipt Date: 20040629
  Transmission Date: 20050211
  Serious: No
  Sender: FDA-Public Use
  Company Number: PHEH2004US07131

PATIENT
  Age: 63 Year
  Sex: Female
  Weight: 49.4 kg

DRUGS (7)
  1. ZOMETA [Suspect]
     Indication: METASTASES TO BONE
     Dosage: 4 MG EVERY 28 DAYS, INTRAVENOUS
     Route: 042
     Dates: start: 20020102, end: 20040513
  2. K-DUR 10 [Concomitant]
  3. FUROSEMIDE [Concomitant]
  4. MS CONTIN [Concomitant]
  5. RELAFEN [Concomitant]
  6. FEMARA [Concomitant]
  7. PAXIL [Concomitant]

REACTIONS (2)
  - ARTHRITIS [None]
  - PAIN [None]
